FAERS Safety Report 4546044-0 (Version None)
Quarter: 2005Q1

REPORT INFORMATION
  Report Type: 
  Country: None (occurrence: None)
  Receive Date: 20050103
  Receipt Date: 20041217
  Transmission Date: 20050727
  Serious: Yes (Hospitalization, Other)
  Sender: FDA-Public Use
  Company Number: 2004BI001899

PATIENT
  Age: 52 Year
  Sex: Female
  Weight: 84.369 kg

DRUGS (5)
  1. AVONEX [Suspect]
     Indication: MULTIPLE SCLEROSIS
     Dosage: 30 UG; QW; IM
     Route: 030
     Dates: start: 19990101, end: 20030101
  2. AVONEX [Suspect]
     Indication: MULTIPLE SCLEROSIS
     Dosage: 30 UG; QW; IM
     Route: 030
     Dates: start: 20030101, end: 20041101
  3. DETROL [Concomitant]
  4. CELEXA [Concomitant]
  5. HYPERTENSION MEDS [Concomitant]

REACTIONS (6)
  - AMNESIA [None]
  - ASTHENIA [None]
  - CONVULSION [None]
  - DRUG INEFFECTIVE [None]
  - HYPERTENSION [None]
  - SPEECH DISORDER [None]
